FAERS Safety Report 19782502 (Version 1)
Quarter: 2021Q3

REPORT INFORMATION
  Report Type: Spontaneous
  Country: US (occurrence: US)
  Receive Date: 20210902
  Receipt Date: 20210902
  Transmission Date: 20211014
  Serious: No
  Sender: FDA-Public Use
  Company Number: US-ENDO PHARMACEUTICALS INC-2021-005539

PATIENT
  Sex: Male
  Weight: 80.29 kg

DRUGS (2)
  1. PREDNISONE. [Suspect]
     Active Substance: PREDNISONE
     Dosage: 6 TABLETS FOR 3 DAYS, THEN 4 TABS FOR 3 DAYS, 2 TABS FOR 3 DAYS THEN 1 TAB FOR 3 DAYS, UNKNOWN
     Route: 065
  2. PREDNISONE. [Suspect]
     Active Substance: PREDNISONE
     Indication: PAIN
     Dosage: 60 MG, DAILY FOR 5 DAYS
     Route: 065

REACTIONS (1)
  - Therapeutic product effect decreased [Unknown]
